FAERS Safety Report 21526642 (Version 2)
Quarter: 2022Q4

REPORT INFORMATION
  Report Type: Report from Study
  Country: US (occurrence: US)
  Receive Date: 20221031
  Receipt Date: 20221103
  Transmission Date: 20230113
  Serious: No
  Sender: FDA-Public Use
  Company Number: US-ABBVIE-4150839

PATIENT
  Sex: Male

DRUGS (18)
  1. RINVOQ [Suspect]
     Active Substance: UPADACITINIB
     Indication: Dermatitis atopic
     Dosage: FORM STRENGTH : 15 MG
     Route: 048
     Dates: start: 20220831
  2. CLOBETASOL OIN 0.05% [Concomitant]
     Indication: Product used for unknown indication
  3. MODERNA COVID-19 VACCINE [Concomitant]
     Active Substance: ELASOMERAN
     Indication: COVID-19 immunisation
     Dosage: 1 IN 1 ONCE
     Route: 030
  4. MODERNA COVID-19 VACCINE [Concomitant]
     Active Substance: ELASOMERAN
     Indication: COVID-19 immunisation
     Dosage: 1 IN 1 ONCE (BOOSTER DOSE)
     Route: 030
  5. FLUOCIN ACET OIL 0.01%SC; [Concomitant]
     Indication: Product used for unknown indication
  6. HYDROCORTISO CRE 2.5%; [Concomitant]
     Indication: Product used for unknown indication
  7. BRYHALI LOT 0.01%; [Concomitant]
     Indication: Product used for unknown indication
  8. ALBUTEROL AER HFA [Concomitant]
     Indication: Product used for unknown indication
  9. PREZISTA TAB 600MG; [Concomitant]
     Indication: Product used for unknown indication
  10. EUCRISA OIN 2%; [Concomitant]
     Indication: Product used for unknown indication
  11. SHINGRIX INJ 50/0.5ML; [Concomitant]
     Indication: Product used for unknown indication
  12. FLUOCIN ACET OIL 0.01%; [Concomitant]
     Indication: Product used for unknown indication
  13. KENALOG-40 INJ 40MG/ML; [Concomitant]
     Indication: Product used for unknown indication
  14. RITONAVIR TAB 100MG; [Concomitant]
     Indication: Product used for unknown indication
  15. VIIBRYD TAB 20MG [Concomitant]
     Indication: Product used for unknown indication
  16. VALACYCLOVIR TAB 1GM; [Concomitant]
     Indication: Product used for unknown indication
  17. BUPROPN HCL TAB 150MG XL [Concomitant]
     Indication: Product used for unknown indication
  18. ISENTRESS TAB 400MG; [Concomitant]
     Indication: Product used for unknown indication

REACTIONS (3)
  - Fatigue [Not Recovered/Not Resolved]
  - Oral herpes [Unknown]
  - Dermatitis atopic [Unknown]

NARRATIVE: CASE EVENT DATE: 20220101
